FAERS Safety Report 5601567-8 (Version None)
Quarter: 2008Q1

REPORT INFORMATION
  Report Type: 
  Country: None (occurrence: None)
  Receive Date: 20080124
  Receipt Date: 20080118
  Transmission Date: 20080703
  Serious: Yes (Other)
  Sender: FDA-Public Use
  Company Number: DE-JNJFOC-20071205248

PATIENT
  Sex: Male

DRUGS (1)
  1. HALDOL DECANOAT [Suspect]
     Indication: SCHIZOPHRENIA
     Dosage: 1-2 ML
     Route: 030

REACTIONS (1)
  - HAEMOLYTIC ANAEMIA [None]
